FAERS Safety Report 7251236-6 (Version None)
Quarter: 2011Q1

REPORT INFORMATION
  Report Type: 
  Country: None (occurrence: None)
  Receive Date: 20110128
  Receipt Date: 20110124
  Transmission Date: 20110831
  Serious: Yes (Death, Hospitalization)
  Sender: FDA-Public Use
  Company Number: US-B.I. PHARMACEUTICALS,INC./RIDGEFIELD-2010-BP-14724BP

PATIENT
  Sex: Male

DRUGS (5)
  1. IMDUR [Concomitant]
     Dosage: 30 MG
     Dates: start: 20070308
  2. PRADAXA [Suspect]
     Indication: ATRIAL FIBRILLATION
     Route: 048
  3. AMLODIPINE [Concomitant]
     Dates: start: 20080114
  4. SIMVASTATIN [Concomitant]
     Dosage: 20 MG
  5. LOSARTAN POTASSIUM [Concomitant]
     Dosage: 25 MG
     Dates: start: 20070828

REACTIONS (4)
  - ISCHAEMIA [None]
  - MYOCARDIAL INFARCTION [None]
  - VENTRICULAR TACHYCARDIA [None]
  - VENTRICLE RUPTURE [None]
